FAERS Safety Report 5385326-X (Version None)
Quarter: 2007Q3

REPORT INFORMATION
  Report Type: 
  Country: None (occurrence: None)
  Receive Date: 20070709
  Receipt Date: 20070709
  Transmission Date: 20080115
  Serious: Yes (Hospitalization)
  Sender: FDA-Public Use
  Company Number: None

PATIENT
  Age: 67 Year
  Sex: Female
  Weight: 89 kg

DRUGS (2)
  1. COUMADIN [Suspect]
     Indication: THROMBOSIS PROPHYLAXIS
     Dosage: 4 MG ONCE PO, 5 MG ONCE PO
     Route: 048
     Dates: start: 20070604, end: 20070604
  2. COUMADIN [Suspect]
     Indication: THROMBOSIS PROPHYLAXIS
     Dosage: 4 MG ONCE PO, 5 MG ONCE PO
     Route: 048
     Dates: start: 20070605, end: 20070605

REACTIONS (2)
  - ECCHYMOSIS [None]
  - SKIN NECROSIS [None]
